FAERS Safety Report 7535252-2 (Version None)
Quarter: 2011Q2

REPORT INFORMATION
  Report Type: 
  Country: None (occurrence: None)
  Receive Date: 20110609
  Receipt Date: 20091207
  Transmission Date: 20111010
  Serious: No
  Sender: FDA-Public Use
  Company Number: 2008BI024544

PATIENT
  Sex: Female

DRUGS (1)
  1. TYSABRI [Suspect]
     Indication: MULTIPLE SCLEROSIS
     Route: 042
     Dates: start: 20080728, end: 20100915

REACTIONS (12)
  - OXYGEN SATURATION DECREASED [None]
  - DIARRHOEA [None]
  - HEADACHE [None]
  - NAUSEA [None]
  - NASOPHARYNGITIS [None]
  - ABDOMINAL DISCOMFORT [None]
  - LUNG DISORDER [None]
  - ARTHRALGIA [None]
  - FATIGUE [None]
  - VOMITING [None]
  - DYSPNOEA [None]
  - BRONCHOPNEUMONIA [None]
